FAERS Safety Report 16866795 (Version 1)
Quarter: 2019Q3

REPORT INFORMATION
  Report Type: Report from Study
  Country: US (occurrence: US)
  Receive Date: 20190930
  Receipt Date: 20190930
  Transmission Date: 20191005
  Serious: Yes (Hospitalization)
  Sender: FDA-Public Use
  Company Number: US-ROCHE-2409808

PATIENT
  Age: 63 Year
  Sex: Female
  Weight: 73.28 kg

DRUGS (5)
  1. ACETAMINOPHEN. [Concomitant]
     Active Substance: ACETAMINOPHEN
     Route: 048
     Dates: start: 20190910
  2. VENETOCLAX. [Suspect]
     Active Substance: VENETOCLAX
     Indication: B-CELL LYMPHOMA
     Dosage: ON 05/SEP/2019, HE RECEIVED LAST RECENT DOSE OF VENETOCLAX
     Route: 048
     Dates: start: 20190730
  3. BENDAMUSTINE [Suspect]
     Active Substance: BENDAMUSTINE
     Indication: B-CELL LYMPHOMA
     Dosage: ON 28/AUG/2019, HE RECEIVED RECENT DOSE OF BENDAMUSTINE.
     Route: 065
     Dates: start: 20190703
  4. PREGABALIN. [Concomitant]
     Active Substance: PREGABALIN
     Route: 048
     Dates: start: 20190910
  5. OBINUTUZUMAB. [Suspect]
     Active Substance: OBINUTUZUMAB
     Indication: B-CELL LYMPHOMA
     Dosage: ON 27/AUG/2019, HE RECEIVED LAST DOSE OF LAST CYCLE OF OBINUTUZUMAB
     Route: 042
     Dates: start: 20190703

REACTIONS (1)
  - Back pain [Not Recovered/Not Resolved]

NARRATIVE: CASE EVENT DATE: 20190909
